FAERS Safety Report 20763171 (Version 2)
Quarter: 2022Q2

REPORT INFORMATION
  Report Type: Spontaneous
  Country: US (occurrence: US)
  Receive Date: 20220428
  Receipt Date: 20220519
  Transmission Date: 20220721
  Serious: No
  Sender: FDA-Public Use
  Company Number: US-PFIZER INC-202200532637

PATIENT
  Age: 60 Year
  Sex: Female

DRUGS (3)
  1. IBRANCE [Suspect]
     Active Substance: PALBOCICLIB
     Indication: Breast cancer female
     Dosage: 125 MG, CYCLIC (1 CAP BY MOUTH ONCE DAILY FOR 21 DAYS ON THEN 7 DAYS OFF EVERY 28 DAYS CYCLE)
     Route: 048
     Dates: start: 20220331
  2. IBRANCE [Suspect]
     Active Substance: PALBOCICLIB
     Indication: Hormone receptor positive breast cancer
     Dosage: 125 MG
     Dates: start: 20220328, end: 20220503
  3. LETROZOLE [Concomitant]
     Active Substance: LETROZOLE
     Dosage: UNK

REACTIONS (6)
  - Bone pain [Unknown]
  - Eye pruritus [Recovering/Resolving]
  - Dry eye [Recovering/Resolving]
  - Dizziness [Unknown]
  - Memory impairment [Unknown]
  - Back pain [Unknown]

NARRATIVE: CASE EVENT DATE: 20220101
